FAERS Safety Report 23533474 (Version 1)
Quarter: 2024Q1

REPORT INFORMATION
  Report Type: Spontaneous
  Country: US (occurrence: None)
  Receive Date: 20240216
  Receipt Date: 20240216
  Transmission Date: 20240410
  Serious: Yes (Hospitalization)
  Sender: FDA-Public Use
  Company Number: None

PATIENT
  Sex: Female

DRUGS (3)
  1. XOLAIR [Suspect]
     Active Substance: OMALIZUMAB
     Indication: Asthma
     Dosage: INJECT 2 SYRINGES UNDER THE SKIN (SUBCUTANEOUS INJECTION) EVERY FOUR WEEKS ?? STARTED DATE 20-FEB-20
     Route: 058
     Dates: start: 202402
  2. ALBUTEROL [Suspect]
     Active Substance: ALBUTEROL
     Dosage: USING THE ALBUTEROL NEBULIZER EVERY 3-4 HOURS DAILY.?
  3. GLUCOS/CHOND [Concomitant]

REACTIONS (2)
  - Lung disorder [None]
  - Quality of life decreased [None]
